FAERS Safety Report 7288114-2 (Version None)
Quarter: 2011Q1

REPORT INFORMATION
  Report Type: 
  Country: None (occurrence: None)
  Receive Date: 20110211
  Receipt Date: 20101112
  Transmission Date: 20110831
  Serious: No
  Sender: FDA-Public Use
  Company Number: US-BAYER-2010-005461

PATIENT
  Sex: Female
  Weight: 58.957 kg

DRUGS (6)
  1. VITAMIN D [Concomitant]
  2. ASPIRIN [Concomitant]
  3. ALEVE (CAPLET) [Suspect]
     Indication: TENDON RUPTURE
     Dosage: COUNT BOTTLE 50S
     Route: 048
     Dates: start: 20101101, end: 20101101
  4. FISH OIL [Concomitant]
  5. LORAZEPAM [Concomitant]
  6. MULTIVITAMIN [Concomitant]

REACTIONS (1)
  - RASH [None]
